FAERS Safety Report 8063122-2 (Version None)
Quarter: 2012Q1

REPORT INFORMATION
  Report Type: 
  Country: None (occurrence: None)
  Receive Date: 20120123
  Receipt Date: 20120110
  Transmission Date: 20120608
  Serious: Yes (Other)
  Sender: FDA-Public Use
  Company Number: US-ROCHE-793768

PATIENT
  Sex: Male
  Weight: 68.1 kg

DRUGS (4)
  1. ACCUTANE [Suspect]
     Route: 048
     Dates: start: 19930111, end: 19930512
  2. ACCUTANE [Suspect]
     Indication: ACNE
     Route: 048
     Dates: start: 19920325, end: 19920715
  3. ACCUTANE [Suspect]
     Route: 048
     Dates: start: 19931116, end: 19960930
  4. CLARITIN-D [Concomitant]

REACTIONS (7)
  - CHAPPED LIPS [None]
  - OROPHARYNGEAL PAIN [None]
  - INFLAMMATORY BOWEL DISEASE [None]
  - IRRITABLE BOWEL SYNDROME [None]
  - DRY SKIN [None]
  - DEPRESSION [None]
  - EPISTAXIS [None]
